FAERS Safety Report 6897133-7 (Version None)
Quarter: 2010Q3

REPORT INFORMATION
  Report Type: 
  Country: None (occurrence: None)
  Receive Date: 20100729
  Receipt Date: 20100722
  Transmission Date: 20110219
  Serious: Yes (Hospitalization)
  Sender: FDA-Public Use
  Company Number: 2010SP040272

PATIENT
  Age: 55 Year
  Sex: Male

DRUGS (9)
  1. MIRTAZAPINE [Suspect]
     Indication: DEPRESSION
     Dosage: 15 MG; QD; PO
     Route: 048
  2. ANAFRANIL [Suspect]
     Indication: DEPRESSION
     Dosage: 75 MG; TID; PO
     Route: 048
     Dates: end: 20091212
  3. OXAZEPAM [Suspect]
     Indication: PRODUCT USED FOR UNKNOWN INDICATION
     Dosage: 50 MG; BID; PO
     Route: 048
  4. IMOVANE (ZOPICLONE) [Suspect]
     Indication: INSOMNIA
     Dosage: 1 DF; QD; PO
     Route: 048
  5. TERCIAN [Concomitant]
  6. TANGANIL [Concomitant]
  7. OMEPRAZOLE [Concomitant]
  8. CHONDROSULF [Concomitant]
  9. FENOFIBRATE [Concomitant]

REACTIONS (6)
  - ABNORMAL BEHAVIOUR [None]
  - ACCIDENTAL OVERDOSE [None]
  - CONFUSIONAL STATE [None]
  - DISORIENTATION [None]
  - INDIFFERENCE [None]
  - PYROMANIA [None]
